FAERS Safety Report 8580866-4 (Version None)
Quarter: 2012Q3

REPORT INFORMATION
  Report Type: 
  Country: None (occurrence: None)
  Receive Date: 20120726
  Receipt Date: 20120613
  Transmission Date: 20120928
  Serious: Yes (Hospitalization)
  Sender: FDA-Public Use
  Company Number: 2012HINREG0010

PATIENT
  Age: 51 Year
  Sex: Male
  Weight: 75 kg

DRUGS (7)
  1. FUOXETINE (FLUOXETINE) [Concomitant]
  2. NEVIRAPINE [Suspect]
     Indication: HIV INFECTION
     Dosage: 400 MG, QD, ORAL
     Route: 048
     Dates: start: 20120403
  3. ABACAVIR SULFATE/LAMIVUDINE [Concomitant]
  4. ZOLADEX (GOSERELIN + GOSERELIN ACETATE) [Concomitant]
  5. DIAZEPAM [Concomitant]
  6. DICLOFENAC SODIUM [Concomitant]
  7. LEUPROLIDE ACETATE (LEUPRORELIN) [Concomitant]

REACTIONS (6)
  - CONFUSIONAL STATE [None]
  - ASPARTATE AMINOTRANSFERASE INCREASED [None]
  - BLOOD ALBUMIN INCREASED [None]
  - BLOOD BILIRUBIN INCREASED [None]
  - GAMMA-GLUTAMYLTRANSFERASE INCREASED [None]
  - PALPITATIONS [None]
